FAERS Safety Report 10495083 (Version 1)
Quarter: 2014Q3

REPORT INFORMATION
  Report Type: Spontaneous
  Country: US (occurrence: None)
  Receive Date: 20140815
  Receipt Date: 20140815
  Transmission Date: 20150326
  Serious: Yes (Other)
  Sender: FDA-Public Use
  Company Number: ADR-2014-00273

PATIENT
  Age: 53 Year
  Sex: Female

DRUGS (2)
  1. MORPHINE INTRATHECAL [Suspect]
     Active Substance: MORPHINE
     Indication: PAIN
     Dosage: 13.487MG/DAY
  2. BACLOFEN INTRATHECAL [Suspect]
     Active Substance: BACLOFEN
     Indication: MUSCLE SPASTICITY
     Dosage: 202.3MCG/DAY

REACTIONS (5)
  - Drug withdrawal syndrome [None]
  - Neck pain [None]
  - Pain [None]
  - Spinal pain [None]
  - Musculoskeletal pain [None]
